FAERS Safety Report 20775348 (Version 1)
Quarter: 2022Q2

REPORT INFORMATION
  Report Type: Spontaneous
  Country: JP (occurrence: JP)
  Receive Date: 20220502
  Receipt Date: 20220502
  Transmission Date: 20220721
  Serious: Yes (Other)
  Sender: FDA-Public Use
  Company Number: JP-BRISTOL-MYERS SQUIBB COMPANY-2022-027142

PATIENT
  Age: 80 Year
  Sex: Male

DRUGS (1)
  1. VIDAZA [Suspect]
     Active Substance: AZACITIDINE
     Indication: Acute myeloid leukaemia
     Dosage: FROM THE 1ST TO 4TH CYCLE AND FROM THE 5TH TO 25TH CYCLE.

REACTIONS (2)
  - Enterocolitis [Unknown]
  - Lower gastrointestinal haemorrhage [Unknown]
